FAERS Safety Report 9364215 (Version 1)
Quarter: 2013Q2

REPORT INFORMATION
  Report Type: Spontaneous
  Country: US (occurrence: US)
  Receive Date: 20130624
  Receipt Date: 20130624
  Transmission Date: 20140414
  Serious: Yes (Other)
  Sender: FDA-Public Use
  Company Number: US-PFIZER INC-2012311387

PATIENT
  Age: 28 Year
  Sex: Male
  Weight: 56.69 kg

DRUGS (10)
  1. NEURONTIN [Suspect]
     Indication: FIBROMYALGIA
     Dosage: 300 MG, 4X/DAY
     Dates: start: 2004
  2. NEURONTIN [Suspect]
     Indication: NEUROPATHY PERIPHERAL
  3. LYRICA [Suspect]
     Indication: FIBROMYALGIA
     Dosage: 150 MG, 3X/DAY
     Dates: start: 2007, end: 2013
  4. LYRICA [Suspect]
     Indication: NEUROPATHY PERIPHERAL
  5. PHRENILIN [Concomitant]
     Indication: MIGRAINE
     Dosage: 50/325 MG, 2X/DAY
  6. CLONAZEPAM [Concomitant]
     Indication: PAIN
     Dosage: 2 MG, 2X/DAY
  7. CLONAZEPAM [Concomitant]
     Indication: CONVULSION
  8. CLONAZEPAM [Concomitant]
     Indication: MUSCLE RELAXANT THERAPY
  9. NORCO [Concomitant]
     Indication: PAIN
     Dosage: 15MG, DAILY
  10. TRAMADOL [Concomitant]
     Indication: PAIN
     Dosage: 100 MG, 4X/DAY

REACTIONS (7)
  - Colon cancer [Not Recovered/Not Resolved]
  - Gastrointestinal disorder [Unknown]
  - Limb injury [Unknown]
  - Weight fluctuation [Not Recovered/Not Resolved]
  - Malaise [Not Recovered/Not Resolved]
  - Malabsorption [Not Recovered/Not Resolved]
  - Anaemia [Not Recovered/Not Resolved]
